FAERS Safety Report 9496363 (Version 2)
Quarter: 2013Q3

REPORT INFORMATION
  Report Type: Spontaneous
  Country: JP (occurrence: JP)
  Receive Date: 20130904
  Receipt Date: 20130913
  Transmission Date: 20140515
  Serious: Yes (Other)
  Sender: FDA-Public Use
  Company Number: JP-JNJFOC-20130817348

PATIENT
  Age: 49 Year
  Sex: Female

DRUGS (2)
  1. REMICADE [Suspect]
     Indication: CROHN^S DISEASE
     Dosage: TOTAL NUMBER OF INFUSIONS: 38
     Route: 042
  2. UNKNOWN ADRENAL HORMONE PREPARATIONS [Suspect]
     Indication: CROHN^S DISEASE
     Route: 065

REACTIONS (1)
  - Non-Hodgkin^s lymphoma [Recovering/Resolving]
